FAERS Safety Report 7879520-3 (Version None)
Quarter: 2011Q4

REPORT INFORMATION
  Report Type: 
  Country: None (occurrence: None)
  Receive Date: 20111101
  Receipt Date: 20111019
  Transmission Date: 20120403
  Serious: Yes (Hospitalization)
  Sender: FDA-Public Use
  Company Number: US-GLAXOSMITHKLINE-A0768553A

PATIENT
  Age: 58 Year
  Sex: Female
  Weight: 133.6 kg

DRUGS (7)
  1. METFORMIN HCL [Concomitant]
     Dosage: 1000MG TWICE PER DAY
     Dates: start: 20020101
  2. AVANDAMET [Suspect]
     Indication: DIABETES MELLITUS
     Route: 048
  3. ACTOS [Concomitant]
     Dates: start: 20040101, end: 20040101
  4. GLUCOPHAGE [Concomitant]
     Dosage: 1000MG TWICE PER DAY
     Dates: start: 20020101
  5. LANTUS [Concomitant]
     Dates: start: 20050101
  6. AVANDIA [Suspect]
     Indication: TYPE 2 DIABETES MELLITUS
     Dosage: 4MG TWICE PER DAY
     Route: 065
     Dates: start: 20010207, end: 20070701
  7. INSULIN GLARGINE [Concomitant]
     Dates: start: 20050101

REACTIONS (9)
  - CHEST PAIN [None]
  - BLOOD CHOLESTEROL INCREASED [None]
  - ARTERIOSCLEROSIS [None]
  - CORONARY ARTERY DISEASE [None]
  - CEREBROVASCULAR ACCIDENT [None]
  - MULTIPLE FRACTURES [None]
  - HYPERTENSION [None]
  - MYOCARDIAL INFARCTION [None]
  - PAIN [None]
